FAERS Safety Report 16420827 (Version 1)
Quarter: 2019Q2

REPORT INFORMATION
  Report Type: Spontaneous
  Country: US (occurrence: US)
  Receive Date: 20190612
  Receipt Date: 20190612
  Transmission Date: 20190711
  Serious: No
  Sender: FDA-Public Use
  Company Number: US-US WORLDMEDS, LLC-USW201903-000581

PATIENT
  Sex: Male

DRUGS (7)
  1. LUCEMYRA [Suspect]
     Active Substance: LOFEXIDINE
  2. METHADONE [Concomitant]
     Active Substance: METHADONE HYDROCHLORIDE
     Dates: start: 201811, end: 20190305
  3. PERCOCET [Suspect]
     Active Substance: ACETAMINOPHEN\OXYCODONE HYDROCHLORIDE
  4. METHADONE [Concomitant]
     Active Substance: METHADONE HYDROCHLORIDE
     Dates: start: 2018
  5. METHADONE [Concomitant]
     Active Substance: METHADONE HYDROCHLORIDE
     Dates: start: 201808
  6. LUCEMYRA [Suspect]
     Active Substance: LOFEXIDINE
     Indication: DRUG WITHDRAWAL SYNDROME
     Dates: start: 20190312
  7. LUCEMYRA [Suspect]
     Active Substance: LOFEXIDINE

REACTIONS (4)
  - Rhinorrhoea [Not Recovered/Not Resolved]
  - Drug withdrawal syndrome [Not Recovered/Not Resolved]
  - Insomnia [Not Recovered/Not Resolved]
  - Product packaging quantity issue [Unknown]

NARRATIVE: CASE EVENT DATE: 20190308
